FAERS Safety Report 20351861 (Version 1)
Quarter: 2022Q1

REPORT INFORMATION
  Report Type: Spontaneous
  Country: US (occurrence: None)
  Receive Date: 20220118
  Receipt Date: 20220118
  Transmission Date: 20220424
  Serious: Yes (Life-Threatening, Hospitalization, Disabling)
  Sender: FDA-Public Use
  Company Number: None

PATIENT
  Age: 57 Year
  Sex: Male
  Weight: 81 kg

DRUGS (1)
  1. SUTAB [Suspect]
     Active Substance: MAGNESIUM SULFATE\POTASSIUM CHLORIDE\SODIUM SULFATE
     Indication: Colonoscopy
     Dosage: OTHER FREQUENCY : 2 TIMES WITHIN 6 H;?
     Route: 048
     Dates: start: 20211216, end: 20211216

REACTIONS (10)
  - Vomiting projectile [None]
  - Diarrhoea [None]
  - Dehydration [None]
  - Fatigue [None]
  - Somnolence [None]
  - Fall [None]
  - Ischaemic stroke [None]
  - Vertebral artery thrombosis [None]
  - Basilar artery occlusion [None]
  - Disability [None]

NARRATIVE: CASE EVENT DATE: 20211216
